FAERS Safety Report 25179664 (Version 1)
Quarter: 2025Q2

REPORT INFORMATION
  Report Type: Spontaneous
  Country: IL (occurrence: IL)
  Receive Date: 20250409
  Receipt Date: 20250409
  Transmission Date: 20250717
  Serious: Yes (Death, Hospitalization)
  Sender: JOHNSON AND JOHNSON
  Company Number: IL-JNJFOC-20250408534

PATIENT
  Age: 60 Year
  Sex: Male

DRUGS (2)
  1. TECVAYLI [Suspect]
     Active Substance: TECLISTAMAB-CQYV
     Indication: Product used for unknown indication
     Route: 065
  2. IMMUNOGLOBULINS [Concomitant]
     Indication: Hypergammaglobulinaemia

REACTIONS (1)
  - Influenza [Fatal]
